FAERS Safety Report 9254096 (Version 1)
Quarter: 2013Q2

REPORT INFORMATION
  Report Type: Spontaneous
  Country: US (occurrence: None)
  Receive Date: 20130422
  Receipt Date: 20130422
  Transmission Date: 20140414
  Serious: Yes (Hospitalization)
  Sender: FDA-Public Use
  Company Number: None

PATIENT
  Age: 57 Year
  Sex: Male
  Weight: 85.3 kg

DRUGS (2)
  1. FLUOROURACIL [Suspect]
     Indication: ADENOCARCINOMA OF COLON
     Route: 042
     Dates: start: 20121204
  2. OXALIPLATIN [Suspect]
     Route: 042
     Dates: start: 20121204

REACTIONS (6)
  - Diarrhoea [None]
  - Abdominal pain upper [None]
  - Nausea [None]
  - Vomiting [None]
  - Dyspepsia [None]
  - Dyspepsia [None]
